FAERS Safety Report 22220156 (Version 1)
Quarter: 2023Q2

REPORT INFORMATION
  Report Type: Spontaneous
  Country: FR (occurrence: FR)
  Receive Date: 20230417
  Receipt Date: 20230417
  Transmission Date: 20230721
  Serious: Yes (Hospitalization)
  Sender: FDA-Public Use
  Company Number: None

PATIENT
  Age: 64 Year
  Sex: Male
  Weight: 71 kg

DRUGS (1)
  1. KETOPROFEN [Suspect]
     Active Substance: KETOPROFEN
     Dosage: UNK, UNSPECIFIED
     Route: 048
     Dates: start: 202303, end: 202303

REACTIONS (3)
  - Hepatitis cholestatic [Not Recovered/Not Resolved]
  - Condition aggravated [Not Recovered/Not Resolved]
  - Biliary tract disorder [Not Recovered/Not Resolved]

NARRATIVE: CASE EVENT DATE: 20230301
